FAERS Safety Report 4292294-0 (Version None)
Quarter: 2004Q1

REPORT INFORMATION
  Report Type: 
  Country: None (occurrence: None)
  Receive Date: 20040211
  Receipt Date: 20040203
  Transmission Date: 20041129
  Serious: Yes (Hospitalization)
  Sender: FDA-Public Use
  Company Number: DE-ROCHE-357988

PATIENT
  Age: 36 Year
  Sex: Male
  Weight: 68.5 kg

DRUGS (5)
  1. DACLIZUMAB [Suspect]
     Route: 042
     Dates: start: 20031202, end: 20031202
  2. DACLIZUMAB [Suspect]
     Route: 042
     Dates: end: 20031229
  3. MYCOPHENOLATE MOFETIL [Suspect]
     Route: 048
     Dates: start: 20031202
  4. TACROLIMUS [Suspect]
     Route: 048
     Dates: start: 20031224
  5. CORTICOSTEROIDS [Suspect]
     Route: 065

REACTIONS (5)
  - BLOOD CREATINE INCREASED [None]
  - C-REACTIVE PROTEIN DECREASED [None]
  - PSEUDOMONAS INFECTION [None]
  - URINARY TRACT INFECTION [None]
  - WHITE BLOOD CELL COUNT INCREASED [None]
